FAERS Safety Report 9237251 (Version 1)
Quarter: 2013Q2

REPORT INFORMATION
  Report Type: Spontaneous
  Country: IT (occurrence: IT)
  Receive Date: 20130417
  Receipt Date: 20130417
  Transmission Date: 20140414
  Serious: Yes (Hospitalization)
  Sender: FDA-Public Use
  Company Number: IT-JNJFOC-20130404691

PATIENT
  Age: 33 Year
  Sex: Female

DRUGS (6)
  1. RISPERDAL [Suspect]
     Indication: AFFECTIVE DISORDER
     Route: 048
     Dates: start: 20130119, end: 20130119
  2. RISPERDAL [Suspect]
     Indication: AFFECTIVE DISORDER
     Route: 048
     Dates: start: 20130119, end: 20130119
  3. LAMICTAL [Suspect]
     Indication: AFFECTIVE DISORDER
     Route: 048
     Dates: start: 20130119, end: 20130119
  4. ZOLOFT [Suspect]
     Indication: AFFECTIVE DISORDER
     Route: 048
     Dates: start: 20130119, end: 20130119
  5. TAVOR [Suspect]
     Indication: AFFECTIVE DISORDER
     Route: 048
     Dates: start: 20130119, end: 20130119
  6. LARGACTIL [Suspect]
     Indication: AFFECTIVE DISORDER
     Route: 048
     Dates: start: 20130119, end: 20130119

REACTIONS (2)
  - Sopor [Recovering/Resolving]
  - Intentional overdose [Unknown]
